FAERS Safety Report 5773164-5 (Version None)
Quarter: 2008Q2

REPORT INFORMATION
  Report Type: 
  Country: None (occurrence: None)
  Receive Date: 20080616
  Receipt Date: 20080313
  Transmission Date: 20081010
  Serious: No
  Sender: FDA-Public Use
  Company Number: US-BAYER-200811281BCC

PATIENT
  Age: 72 Year
  Sex: Female
  Weight: 61 kg

DRUGS (3)
  1. ALEVE (CAPLET) [Suspect]
     Indication: PAIN
     Dosage: AS USED: 440 MG  UNIT DOSE: 220 MG
     Route: 048
  2. TOPROL-XL [Concomitant]
  3. SYNTHROID [Concomitant]

REACTIONS (1)
  - CONTUSION [None]
